FAERS Safety Report 5273426-4 (Version None)
Quarter: 2007Q1

REPORT INFORMATION
  Report Type: 
  Country: None (occurrence: None)
  Receive Date: 20061219
  Receipt Date: 20061013
  Transmission Date: 20070707
  Serious: Yes (Hospitalization, Other)
  Sender: FDA-Public Use
  Company Number: US-JNJFOC-20060703208

PATIENT
  Age: 46 Year
  Sex: Female
  Weight: 97.977 kg

DRUGS (13)
  1. ORTHO EVRA [Suspect]
     Indication: CONTRACEPTION
     Dosage: TRANSDERMAL
     Route: 062
     Dates: start: 20021201, end: 20030320
  2. AVONEX [Concomitant]
  3. WELLBUTRIN [Concomitant]
  4. REMERON [Concomitant]
  5. RITALIN [Concomitant]
  6. CELEXA [Concomitant]
  7. LEVOXYL [Concomitant]
  8. XANAX [Concomitant]
  9. ESTROGEN (ESTROGEN NOS) [Concomitant]
  10. VITAMIN B (VITAMIN B) [Concomitant]
  11. ASCORBIC ACID [Concomitant]
  12. EVENING PRIMROSE OIL (EVENING PRIMROSE OIL) [Concomitant]
  13. COQ-10 (UBIDECARENONE) [Concomitant]

REACTIONS (1)
  - DEEP VEIN THROMBOSIS [None]
